FAERS Safety Report 7290612-2 (Version None)
Quarter: 2011Q1

REPORT INFORMATION
  Report Type: 
  Country: None (occurrence: None)
  Receive Date: 20110214
  Receipt Date: 20110208
  Transmission Date: 20110831
  Serious: Yes (Death, Other)
  Sender: FDA-Public Use
  Company Number: US-GENZYME-CAMP-1001381

PATIENT
  Age: 2 Year
  Sex: Male

DRUGS (7)
  1. MYCOPHENOLATE MOFETIL [Concomitant]
     Indication: PROPHYLAXIS AGAINST GRAFT VERSUS HOST DISEASE
     Dosage: 15 MG/KG, TID FROM DAY 0 TO DAY +30
     Route: 065
  2. CAMPATH [Suspect]
     Indication: BONE MARROW CONDITIONING REGIMEN
     Dosage: 0.2 MG/KG, QDX5 FROM DAY -10 TO DAY -6
     Route: 042
  3. CYCLOSPORINE [Concomitant]
     Indication: PROPHYLAXIS AGAINST GRAFT VERSUS HOST DISEASE
     Dosage: 2.5 MG/KG, STARTING ON DAY -3
     Route: 065
  4. CYCLOPHOSPHAMIDE [Suspect]
     Indication: BONE MARROW CONDITIONING REGIMEN
     Dosage: 50 MG/KG, ONCE ON DAY -6
     Route: 042
  5. FLUDARA [Suspect]
     Indication: BONE MARROW CONDITIONING REGIMEN
     Dosage: 40 MG/M2, QDX5 FROM DAY -6 TO DAY -2
     Route: 042
  6. CYCLOSPORINE [Concomitant]
     Indication: PROPHYLAXIS
  7. MYCOPHENOLATE MOFETIL [Concomitant]
     Indication: PROPHYLAXIS

REACTIONS (2)
  - ACUTE GRAFT VERSUS HOST DISEASE IN SKIN [None]
  - SEPSIS [None]
